FAERS Safety Report 14246707 (Version 1)
Quarter: 2017Q4

REPORT INFORMATION
  Report Type: Spontaneous
  Country: US (occurrence: US)
  Receive Date: 20171204
  Receipt Date: 20171204
  Transmission Date: 20180321
  Serious: No
  Sender: FDA-Public Use
  Company Number: US-PFIZER INC-2017514534

PATIENT
  Age: 93 Year
  Sex: Male

DRUGS (1)
  1. SUTENT [Suspect]
     Active Substance: SUNITINIB MALATE
     Indication: RENAL CANCER STAGE IV
     Dosage: 50 MG, CYCLIC (DAILY FOR 28 DAYS ON AND 14 DAYS OFF)
     Dates: start: 20171027

REACTIONS (9)
  - Oral pain [Unknown]
  - Constipation [Unknown]
  - Swollen tongue [Unknown]
  - Jaundice [Unknown]
  - Stomatitis [Unknown]
  - Platelet count decreased [Unknown]
  - Asthenia [Unknown]
  - Glossodynia [Unknown]
  - Oropharyngeal pain [Unknown]
